FAERS Safety Report 7226083-1 (Version None)
Quarter: 2011Q1

REPORT INFORMATION
  Report Type: 
  Country: None (occurrence: None)
  Receive Date: 20110113
  Receipt Date: 20110105
  Transmission Date: 20110831
  Serious: Yes (Other)
  Sender: FDA-Public Use
  Company Number: JP-B.I. PHARMACEUTICALS,INC./RIDGEFIELD-2011-DE-00056GD

PATIENT
  Sex: Female

DRUGS (1)
  1. PRAMIPEXOLE [Suspect]
     Indication: PARKINSON'S DISEASE

REACTIONS (7)
  - ACUTE RESPIRATORY DISTRESS SYNDROME [None]
  - URETERIC OBSTRUCTION [None]
  - HYDRONEPHROSIS [None]
  - DRUG EFFECT DECREASED [None]
  - PNEUMONIA [None]
  - RETROPERITONEAL FIBROSIS [None]
  - APHAGIA [None]
